FAERS Safety Report 20218049 (Version 3)
Quarter: 2022Q1

REPORT INFORMATION
  Report Type: Report from Study
  Country: AU (occurrence: None)
  Receive Date: 20211222
  Receipt Date: 20220201
  Transmission Date: 20220424
  Serious: Yes (Hospitalization)
  Sender: FDA-Public Use
  Company Number: AU-Eisai Medical Research-EC-2021-103182

PATIENT
  Age: 65 Year
  Sex: Male
  Weight: 90.5 kg

DRUGS (23)
  1. LENVATINIB [Suspect]
     Active Substance: LENVATINIB
     Indication: Oesophageal adenocarcinoma
     Dosage: FLUCTUATED DOSAGE
     Route: 048
     Dates: start: 20210929, end: 20211026
  2. LENVATINIB [Suspect]
     Active Substance: LENVATINIB
     Indication: Adenocarcinoma gastric
     Route: 048
     Dates: start: 20211027
  3. PEMBROLIZUMAB [Suspect]
     Active Substance: PEMBROLIZUMAB
     Indication: Oesophageal adenocarcinoma
     Route: 041
     Dates: start: 20210929, end: 20210929
  4. PEMBROLIZUMAB [Suspect]
     Active Substance: PEMBROLIZUMAB
     Indication: Adenocarcinoma gastric
     Route: 041
     Dates: start: 20211117, end: 20211117
  5. OXALIPLATIN [Suspect]
     Active Substance: OXALIPLATIN
     Indication: Oesophageal adenocarcinoma
     Dosage: DOSE UNKNOWN, QOW
     Route: 041
     Dates: start: 20210929, end: 20210929
  6. OXALIPLATIN [Suspect]
     Active Substance: OXALIPLATIN
     Indication: Adenocarcinoma gastric
     Dosage: DOSE UNKNOWN, QOW
     Route: 041
     Dates: start: 20211013, end: 20211013
  7. OXALIPLATIN [Suspect]
     Active Substance: OXALIPLATIN
     Dosage: DOSE UNKNOWN, QOW
     Route: 041
     Dates: start: 20211201, end: 20211201
  8. LEUCOVORIN [Suspect]
     Active Substance: LEUCOVORIN
     Indication: Oesophageal adenocarcinoma
     Dosage: DOSE UNKNOWN, QOW
     Route: 041
     Dates: start: 20210929, end: 20210929
  9. LEUCOVORIN [Suspect]
     Active Substance: LEUCOVORIN
     Indication: Adenocarcinoma gastric
     Dosage: DOSE UNKNOWN, QOW
     Route: 041
     Dates: start: 20211013, end: 20211013
  10. LEUCOVORIN [Suspect]
     Active Substance: LEUCOVORIN
     Dosage: DOSE UNKNOWN, QOW
     Route: 041
     Dates: start: 20211201, end: 20211201
  11. FLUOROURACIL [Suspect]
     Active Substance: FLUOROURACIL
     Indication: Oesophageal adenocarcinoma
     Dosage: DOSE UNKNOWN, QOW;BOLUS
     Route: 040
     Dates: start: 20210929, end: 20210929
  12. FLUOROURACIL [Suspect]
     Active Substance: FLUOROURACIL
     Indication: Adenocarcinoma gastric
     Dosage: DOSE UNKNOWN, QOW
     Route: 041
     Dates: start: 20210929, end: 20211001
  13. FLUOROURACIL [Suspect]
     Active Substance: FLUOROURACIL
     Dosage: DOSE UNKNOWN, QOW; BOLUS
     Route: 041
     Dates: start: 20211013, end: 20211013
  14. FLUOROURACIL [Suspect]
     Active Substance: FLUOROURACIL
     Dosage: DOSE UNKNOWN, QOW
     Route: 041
     Dates: start: 20211013, end: 20211015
  15. FLUOROURACIL [Suspect]
     Active Substance: FLUOROURACIL
     Dosage: DOSE UNKNOWN, QOW; BOLUS
     Route: 041
     Dates: start: 20211201, end: 20211201
  16. FLUOROURACIL [Suspect]
     Active Substance: FLUOROURACIL
     Dosage: DOSE UNKNOWN, QOW
     Route: 041
     Dates: start: 20211201, end: 20211203
  17. HYDROCHLOROTHIAZIDE\TELMISARTAN [Concomitant]
     Active Substance: HYDROCHLOROTHIAZIDE\TELMISARTAN
     Dates: start: 201901
  18. ASCORBIC ACID [Concomitant]
     Active Substance: ASCORBIC ACID
     Dates: start: 202001
  19. ESOMEPRAZOLE [Concomitant]
     Active Substance: ESOMEPRAZOLE
     Dates: start: 202103
  20. CYANOCOBALAMIN [Concomitant]
     Active Substance: CYANOCOBALAMIN
     Dates: start: 202103
  21. MORPHINE [Concomitant]
     Active Substance: MORPHINE
     Dates: start: 20211006
  22. MINERALS\VITAMINS [Concomitant]
     Active Substance: MINERALS\VITAMINS
     Dates: start: 202101
  23. LOPERAMIDE [Concomitant]
     Active Substance: LOPERAMIDE
     Dates: start: 20211013

REACTIONS (2)
  - Hyperglycaemia [Recovered/Resolved with Sequelae]
  - Immune-mediated nephritis [Recovering/Resolving]

NARRATIVE: CASE EVENT DATE: 20211108
